FAERS Safety Report 15410545 (Version 7)
Quarter: 2019Q2

REPORT INFORMATION
  Report Type: Spontaneous
  Country: CA (occurrence: CA)
  Receive Date: 20180921
  Receipt Date: 20190422
  Transmission Date: 20190711
  Serious: Yes (Other)
  Sender: FDA-Public Use
  Company Number: CA-CELLTRION INC.-2018CA022592

PATIENT

DRUGS (11)
  1. MESALAMINE. [Concomitant]
     Active Substance: MESALAMINE
     Indication: COLITIS
     Dosage: UNK
     Route: 048
  2. INFLECTRA [Suspect]
     Active Substance: INFLIXIMAB-DYYB
     Indication: CROHN^S DISEASE
     Dosage: 5 MG/KG (600 MG) ON WEEK 0,2,6, THEN EVERY 8 WEEKS
     Route: 042
     Dates: start: 20180907, end: 20180907
  3. HYDROCORTISONE. [Concomitant]
     Active Substance: HYDROCORTISONE
     Indication: PREMEDICATION
     Dosage: 100 MG, UNK
     Route: 042
  4. MESALAMINE. [Concomitant]
     Active Substance: MESALAMINE
     Indication: CROHN^S DISEASE
     Dosage: 2.4 G, 2X/DAY
     Route: 048
     Dates: start: 20180803
  5. INFLECTRA [Suspect]
     Active Substance: INFLIXIMAB-DYYB
     Dosage: 5 MG/KG (600 MG) ON WEEK 0,2,6, THEN EVERY 8 WEEKS
     Route: 042
     Dates: start: 20181203, end: 20181203
  6. INFLECTRA [Suspect]
     Active Substance: INFLIXIMAB-DYYB
     Dosage: 5 MG/KG (600 MG) ON WEEK 0,2,6, THEN EVERY 8 WEEKS
     Route: 042
     Dates: start: 20190128
  7. INFLECTRA [Suspect]
     Active Substance: INFLIXIMAB-DYYB
     Indication: COLITIS ULCERATIVE
     Dosage: 5 MG/KG (600 MG) ON WEEK 0,2,6, THEN EVERY 8 WEEKS
     Route: 042
     Dates: start: 20180820
  8. INFLECTRA [Suspect]
     Active Substance: INFLIXIMAB-DYYB
     Dosage: 5 MG/KG (600 MG) ON WEEK 0,2,6, THEN EVERY 8 WEEKS
     Route: 042
     Dates: start: 20190325
  9. ACETAMINOPHEN. [Concomitant]
     Active Substance: ACETAMINOPHEN
     Dosage: 650 MG, UNK
     Route: 048
  10. INFLECTRA [Suspect]
     Active Substance: INFLIXIMAB-DYYB
     Dosage: 5 MG/KG (600 MG) ON WEEK 0,2,6, THEN EVERY 8 WEEKS
     Route: 042
     Dates: start: 20181005, end: 20181005
  11. ACETAMINOPHEN. [Concomitant]
     Active Substance: ACETAMINOPHEN
     Indication: PREMEDICATION
     Dosage: 650 MG, UNK
     Route: 048

REACTIONS (8)
  - Heart rate irregular [Unknown]
  - Wheezing [Recovering/Resolving]
  - Cough [Recovering/Resolving]
  - Condition aggravated [Recovered/Resolved]
  - Alopecia [Recovering/Resolving]
  - Dysphonia [Recovering/Resolving]
  - Weight increased [Recovered/Resolved]
  - Productive cough [Recovered/Resolved]

NARRATIVE: CASE EVENT DATE: 2018
